FAERS Safety Report 5650457-3 (Version None)
Quarter: 2008Q1

REPORT INFORMATION
  Report Type: 
  Country: None (occurrence: None)
  Receive Date: 20080304
  Receipt Date: 20080304
  Transmission Date: 20080703
  Serious: Yes (Hospitalization)
  Sender: FDA-Public Use
  Company Number: None

PATIENT
  Age: 38 Year
  Sex: Female
  Weight: 66.2 kg

DRUGS (6)
  1. TRASTUZUMAB 440MG GENETECH [Suspect]
     Indication: BREAST CANCER METASTATIC
     Dosage: IV
     Route: 042
  2. BEVACIZUMAB GENETECH [Suspect]
     Indication: BREAST CANCER METASTATIC
     Dosage: IV
     Route: 042
  3. ATENOLOL [Concomitant]
  4. POTASSIUM CHLORIDE [Concomitant]
  5. LETROZOLE [Concomitant]
  6. IBUPROFEN [Concomitant]

REACTIONS (5)
  - CARDIAC FAILURE CONGESTIVE [None]
  - CARDIOTOXICITY [None]
  - COUGH [None]
  - DYSPNOEA EXERTIONAL [None]
  - MALIGNANT PLEURAL EFFUSION [None]
